FAERS Safety Report 16614928 (Version 1)
Quarter: 2019Q3

REPORT INFORMATION
  Report Type: Spontaneous
  Country: US (occurrence: US)
  Receive Date: 20190723
  Receipt Date: 20190723
  Transmission Date: 20191004
  Serious: No
  Sender: FDA-Public Use
  Company Number: US-PFIZER INC-2019310881

PATIENT
  Age: 72 Year
  Sex: Male

DRUGS (32)
  1. LOTREL T (LOTEPREDNOL ETABONATE\TOBRAMYCIN) [Suspect]
     Active Substance: LOTEPREDNOL ETABONATE\TOBRAMYCIN
     Dosage: UNK
  2. OMEPRAZOLE MAGNESIUM. [Suspect]
     Active Substance: OMEPRAZOLE MAGNESIUM
     Dosage: UNK
  3. DILTIAZEM HCL [Suspect]
     Active Substance: DILTIAZEM HYDROCHLORIDE
     Dosage: UNK
  4. NIACIN. [Suspect]
     Active Substance: NIACIN
     Dosage: UNK
  5. REPAGLINIDE. [Suspect]
     Active Substance: REPAGLINIDE
     Dosage: UNK
  6. TRILIPIX [Suspect]
     Active Substance: FENOFIBRIC ACID
     Dosage: UNK
  7. CHLORTHALIDONE. [Suspect]
     Active Substance: CHLORTHALIDONE
     Dosage: UNK
  8. DULOXETINE. [Suspect]
     Active Substance: DULOXETINE
     Dosage: UNK
  9. DOXACURIUM [Suspect]
     Active Substance: DOXACURIUM
     Dosage: UNK
  10. NATEGLINIDE. [Suspect]
     Active Substance: NATEGLINIDE
     Dosage: UNK
  11. OMEGA-3-ACID ETHYL ESTER [Suspect]
     Active Substance: OMEGA-3-ACID ETHYL ESTERS
     Dosage: UNK
  12. TERAZOSIN HCL [Suspect]
     Active Substance: TERAZOSIN HYDROCHLORIDE
     Dosage: UNK
  13. HYDROCHLOROTHIAZIDE. [Suspect]
     Active Substance: HYDROCHLOROTHIAZIDE
     Dosage: UNK
  14. LOSARTAN POTASSIUM. [Suspect]
     Active Substance: LOSARTAN POTASSIUM
     Dosage: UNK
  15. TAMSULOSIN HYDROCHLORIDE. [Suspect]
     Active Substance: TAMSULOSIN HYDROCHLORIDE
     Dosage: UNK
  16. TELMISARTAN. [Suspect]
     Active Substance: TELMISARTAN
     Dosage: UNK
  17. ATORVASTATIN CALCIUM. [Suspect]
     Active Substance: ATORVASTATIN CALCIUM
     Dosage: UNK
  18. BENAZEPRIL [Suspect]
     Active Substance: BENAZEPRIL HYDROCHLORIDE
     Dosage: UNK
  19. HYDRALAZINE [Suspect]
     Active Substance: HYDRALAZINE HYDROCHLORIDE
     Dosage: UNK
  20. ALBUTEROL HFA [Suspect]
     Active Substance: ALBUTEROL SULFATE
     Dosage: UNK
  21. LAMISIL [Suspect]
     Active Substance: TERBINAFINE HYDROCHLORIDE
     Dosage: UNK
  22. SIMVASTATIN. [Suspect]
     Active Substance: SIMVASTATIN
     Dosage: UNK
  23. VALSARTAN. [Suspect]
     Active Substance: VALSARTAN
     Dosage: UNK
  24. GEMFIBROZIL. [Suspect]
     Active Substance: GEMFIBROZIL
     Dosage: UNK
  25. VERAPAMIL HCL [Suspect]
     Active Substance: VERAPAMIL HYDROCHLORIDE
     Dosage: UNK
  26. ALLOPURINOL SODIUM. [Suspect]
     Active Substance: ALLOPURINOL SODIUM
     Dosage: UNK
  27. FENOFIBRATE. [Suspect]
     Active Substance: FENOFIBRATE
     Dosage: UNK
  28. HYDRALAZINE HCL [Suspect]
     Active Substance: HYDRALAZINE HYDROCHLORIDE
     Dosage: UNK
  29. MOBIC [Suspect]
     Active Substance: MELOXICAM
     Dosage: UNK
  30. AMLODIPINE BESILATE [Suspect]
     Active Substance: AMLODIPINE BESYLATE
     Dosage: UNK
  31. LABETALOL HYDROCHLORIDE. [Suspect]
     Active Substance: LABETALOL HYDROCHLORIDE
     Dosage: UNK
  32. SULINDAC. [Suspect]
     Active Substance: SULINDAC
     Dosage: UNK

REACTIONS (1)
  - Drug hypersensitivity [Unknown]
